FAERS Safety Report 8791822 (Version 6)
Quarter: 2013Q2

REPORT INFORMATION
  Report Type: Report from Study
  Country: US (occurrence: US)
  Receive Date: 20120918
  Receipt Date: 20130516
  Transmission Date: 20140414
  Serious: Yes (Life-Threatening, Hospitalization, Other)
  Sender: FDA-Public Use
  Company Number: US-EISAI INC-E7389-03013-CLI-US

PATIENT
  Age: 70 Year
  Sex: Female
  Weight: 68 kg

DRUGS (6)
  1. E7389 (BOLD) [Suspect]
     Indication: BREAST CANCER RECURRENT
     Route: 041
     Dates: start: 20120821, end: 20120913
  2. E7389 (BOLD) [Suspect]
     Route: 041
     Dates: start: 20120927
  3. HERCEPTIN [Suspect]
     Indication: BREAST CANCER METASTATIC
     Route: 041
     Dates: start: 20120821, end: 20120913
  4. HERCEPTIN [Suspect]
     Route: 041
     Dates: start: 20120927
  5. ADVAIR [Concomitant]
  6. ALBUTEROL [Concomitant]

REACTIONS (3)
  - Pulmonary embolism [Recovered/Resolved with Sequelae]
  - Neutropenia [Recovered/Resolved]
  - Electrocardiogram T wave abnormal [Recovered/Resolved with Sequelae]
